FAERS Safety Report 9537912 (Version 5)
Quarter: 2014Q1

REPORT INFORMATION
  Report Type: Report from Study
  Country: DE (occurrence: DE)
  Receive Date: 20130919
  Receipt Date: 20140204
  Transmission Date: 20141002
  Serious: Yes (Hospitalization)
  Sender: FDA-Public Use
  Company Number: PHHO2013DE011931

PATIENT
  Sex: 0

DRUGS (5)
  1. LCL161 [Suspect]
     Indication: BREAST CANCER
     Dosage: 1800 MG, UNK
     Route: 048
     Dates: start: 20130625, end: 20130903
  2. PACLITAXEL [Suspect]
     Indication: BREAST CANCER
     Dosage: 130 MG, UNK
     Dates: start: 20130625, end: 20130903
  3. L-THYROXIN [Concomitant]
     Indication: HYPERTHYROIDISM
     Dosage: 100 MG, UNK
  4. METOPROLOL [Concomitant]
     Indication: HYPERTENSION
     Dosage: 100 MG, UNK
     Dates: end: 20130906
  5. AMLODIPINE [Concomitant]
     Indication: HYPERTENSION
     Dosage: 5 MG, UNK
     Dates: end: 20130906

REACTIONS (3)
  - Pulmonary embolism [Recovered/Resolved]
  - Pneumonitis [Recovered/Resolved]
  - Diarrhoea [Recovered/Resolved]
